FAERS Safety Report 14842016 (Version 2)
Quarter: 2018Q2

REPORT INFORMATION
  Report Type: Report from Study
  Country: IT (occurrence: IT)
  Receive Date: 20180503
  Receipt Date: 20180627
  Transmission Date: 20180711
  Serious: Yes (Other)
  Sender: FDA-Public Use
  Company Number: IT-PFIZER INC-2018177797

PATIENT
  Age: 63 Year
  Sex: Female

DRUGS (4)
  1. LORAZEPAM. [Suspect]
     Active Substance: LORAZEPAM
     Indication: INSOMNIA
     Dosage: 2.5 MG, TOTAL
     Route: 048
     Dates: start: 20180305, end: 20180305
  2. FLUTIFORMO [Concomitant]
     Dosage: 1 DF, UNK
     Route: 055
  3. MODURETIC 5-50 [Concomitant]
     Active Substance: AMILORIDE HYDROCHLORIDE\HYDROCHLOROTHIAZIDE
     Dosage: 1 DF, UNK
     Route: 048
  4. TIMOPTOL [Concomitant]
     Active Substance: TIMOLOL
     Dosage: 1 GTT, UNK
     Route: 057

REACTIONS (2)
  - Psychomotor retardation [Recovering/Resolving]
  - Psychomotor skills impaired [Recovering/Resolving]

NARRATIVE: CASE EVENT DATE: 20180306
